FAERS Safety Report 22672014 (Version 3)
Quarter: 2024Q3

REPORT INFORMATION
  Report Type: Spontaneous
  Country: FR (occurrence: FR)
  Receive Date: 20230705
  Receipt Date: 20240805
  Transmission Date: 20241017
  Serious: Yes (Hospitalization)
  Sender: EMD SERONO INC
  Company Number: None

PATIENT
  Age: 11 Year
  Sex: Male
  Weight: 44 kg

DRUGS (6)
  1. SAIZEN [Suspect]
     Active Substance: SOMATROPIN
     Indication: Failure to thrive
     Dosage: FORM STRENGTH: 8 MG/1.37 ML POWDER AND SOLVENT FOR MULTIDOSE SOLUTION FOR INJECTION??6 DAYS/7
     Route: 058
     Dates: start: 20230511, end: 20230531
  2. ALBUTEROL SULFATE [Concomitant]
     Active Substance: ALBUTEROL SULFATE
     Indication: Product used for unknown indication
     Dosage: 5 MG/2.5ML SOLUTION FOR INHALATION BY NEBULIZER IN SINGLE-DOSE CONTAINER
     Route: 055
  3. ATROVENT [Concomitant]
     Active Substance: IPRATROPIUM BROMIDE
     Indication: Product used for unknown indication
     Dosage: 0.50 MG/1 ML ADULTS, SOLUTION FOR INHALATION BY NEBULIZER IN SINGLE-DOSE CONTAINER
  4. MOVICOL [Concomitant]
     Active Substance: POLYETHYLENE GLYCOL 3350\POTASSIUM CHLORIDE\SODIUM BICARBONATE\SODIUM CHLORIDE
     Indication: Product used for unknown indication
     Dosage: POWDER FOR DRINKABLE SOLUTION IN SACHET
  5. ESOMEPRAZOLE MAGNESIUM [Concomitant]
     Active Substance: ESOMEPRAZOLE MAGNESIUM
     Indication: Product used for unknown indication
  6. PULMICORT TURBUHALER [Concomitant]
     Active Substance: BUDESONIDE
     Indication: Product used for unknown indication
     Dosage: 1 MG/2 ML SUSPENSION FOR INHALATION BY NEBULIZER IN SINGLE-DOSE CONTAINER

REACTIONS (3)
  - Condition aggravated [Not Recovered/Not Resolved]
  - Dyspnoea exertional [Not Recovered/Not Resolved]
  - Acute respiratory failure [Recovered/Resolved]

NARRATIVE: CASE EVENT DATE: 20230515
